FAERS Safety Report 5314381-8 (Version None)
Quarter: 2007Q2

REPORT INFORMATION
  Report Type: 
  Country: None (occurrence: None)
  Receive Date: 20070502
  Receipt Date: 20070425
  Transmission Date: 20071010
  Serious: Yes (Hospitalization)
  Sender: FDA-Public Use
  Company Number: PHEH2007US06266

PATIENT
  Age: 59 Year
  Sex: Female

DRUGS (1)
  1. ZELNORM [Suspect]
     Dosage: UNK, BID
     Route: 048

REACTIONS (2)
  - DEHYDRATION [None]
  - DIZZINESS [None]
